FAERS Safety Report 5556063-3 (Version None)
Quarter: 2007Q4

REPORT INFORMATION
  Report Type: 
  Country: None (occurrence: None)
  Receive Date: 20071211
  Receipt Date: 20071127
  Transmission Date: 20080405
  Serious: Yes (Other)
  Sender: FDA-Public Use
  Company Number: 2007BI019983

PATIENT
  Age: 24 Year
  Sex: Female
  Weight: 98.8842 kg

DRUGS (7)
  1. NATALIZUMAB [Suspect]
     Indication: MULTIPLE SCLEROSIS
     Dosage: 300 MG;QM;IV
     Route: 042
     Dates: start: 20070822, end: 20070822
  2. LEXAPRO [Concomitant]
  3. DARVOCET-N 100 [Concomitant]
  4. VICODIN [Concomitant]
  5. ALBUTEROL [Concomitant]
  6. CIPROFLOXACIN HCL [Concomitant]
  7. NYSTATIN [Concomitant]

REACTIONS (33)
  - ABDOMINAL PAIN [None]
  - ADVERSE DRUG REACTION [None]
  - ALANINE AMINOTRANSFERASE INCREASED [None]
  - ANTIMITOCHONDRIAL ANTIBODY POSITIVE [None]
  - ASPARTATE AMINOTRANSFERASE INCREASED [None]
  - BACK PAIN [None]
  - BACTERIA URINE IDENTIFIED [None]
  - BLOOD ALKALINE PHOSPHATASE INCREASED [None]
  - BLOOD GLUCOSE DECREASED [None]
  - CHEST DISCOMFORT [None]
  - CHEST PAIN [None]
  - CHOLECYSTITIS [None]
  - CONSTIPATION [None]
  - DIARRHOEA [None]
  - DYSPHONIA [None]
  - DYSPNOEA [None]
  - EYE PAIN [None]
  - HEADACHE [None]
  - HEPATIC ENZYME INCREASED [None]
  - LABORATORY TEST INTERFERENCE [None]
  - LARYNGITIS [None]
  - LYMPHOCYTE PERCENTAGE INCREASED [None]
  - MALAISE [None]
  - MONOCYTE COUNT INCREASED [None]
  - NAUSEA [None]
  - NEUTROPHIL COUNT DECREASED [None]
  - NEUTROPHIL COUNT INCREASED [None]
  - PANCREATITIS ACUTE [None]
  - SOMNOLENCE [None]
  - VOMITING [None]
  - WHEEZING [None]
  - WHITE BLOOD CELL COUNT DECREASED [None]
  - WHITE BLOOD CELL COUNT INCREASED [None]
